FAERS Safety Report 8520133-8 (Version None)
Quarter: 2012Q3

REPORT INFORMATION
  Report Type: 
  Country: None (occurrence: None)
  Receive Date: 20120719
  Receipt Date: 20120709
  Transmission Date: 20120928
  Serious: Yes (Other)
  Sender: FDA-Public Use
  Company Number: CA-JNJFOC-20120704835

PATIENT
  Sex: Female
  Weight: 87 kg

DRUGS (4)
  1. IMURAN [Concomitant]
     Route: 048
  2. PREDNISONE [Concomitant]
     Dosage: TAPERING DOSE
     Route: 048
  3. CALCIUM AND VITAMIN D [Concomitant]
     Route: 065
  4. REMICADE [Suspect]
     Indication: COLITIS ULCERATIVE
     Dosage: 0, 2, 4 AND THEN 8 WEEKS
     Route: 042
     Dates: start: 20120622

REACTIONS (2)
  - LUNG NEOPLASM [None]
  - ARTHRALGIA [None]
